FAERS Safety Report 4462773-1 (Version None)
Quarter: 2004Q3

REPORT INFORMATION
  Report Type: 
  Country: None (occurrence: None)
  Receive Date: 20040927
  Receipt Date: 20040913
  Transmission Date: 20050211
  Serious: Yes (Other)
  Sender: FDA-Public Use
  Company Number: 2004066782

PATIENT
  Sex: 0

DRUGS (5)
  1. NEURONTIN [Suspect]
     Indication: ARTHRALGIA
  2. NEURONTIN [Suspect]
     Indication: NERVE INJURY
  3. FENTANYL [Concomitant]
  4. LEVOBUNOLOL HYDROCHLORIDE (LEVOBUNOLOL HYDROCHLORIDE) [Concomitant]
  5. ALL OTHER THERAPEUTIC PRODUCTS (ALL OTHER THERAPEUTIC PRODUCTS) [Concomitant]

REACTIONS (1)
  - SYSTEMIC LUPUS ERYTHEMATOSUS [None]
